FAERS Safety Report 8301574-0 (Version None)
Quarter: 2012Q2

REPORT INFORMATION
  Report Type: 
  Country: None (occurrence: None)
  Receive Date: 20120420
  Receipt Date: 20120411
  Transmission Date: 20120825
  Serious: Yes (Other)
  Sender: FDA-Public Use
  Company Number: CA-JNJFOC-20120405731

PATIENT
  Sex: Male
  Weight: 57 kg

DRUGS (3)
  1. TYLENOL (CAPLET) [Concomitant]
     Indication: PYREXIA
     Route: 065
  2. REMICADE [Suspect]
     Indication: ANKYLOSING SPONDYLITIS
     Route: 042
  3. REMICADE [Suspect]
     Route: 042
     Dates: start: 20120411

REACTIONS (2)
  - TREMOR [None]
  - INFUSION RELATED REACTION [None]
